FAERS Safety Report 8804979 (Version 2)
Quarter: 2013Q2

REPORT INFORMATION
  Report Type: Report from Study
  Country: US (occurrence: US)
  Receive Date: 20120924
  Receipt Date: 20130522
  Transmission Date: 20140414
  Serious: Yes (Death)
  Sender: FDA-Public Use
  Company Number: US-ROCHE-1124294

PATIENT
  Sex: Female

DRUGS (3)
  1. AVASTIN [Suspect]
     Indication: RECTAL CANCER
     Route: 065
  2. AVASTIN [Suspect]
     Indication: ANAL CANCER
  3. AVASTIN [Suspect]
     Indication: RECTOSIGMOID CANCER

REACTIONS (1)
  - Death [Fatal]
